FAERS Safety Report 19462826 (Version 1)
Quarter: 2021Q2

REPORT INFORMATION
  Report Type: Spontaneous
  Country: IN (occurrence: IN)
  Receive Date: 20210625
  Receipt Date: 20210625
  Transmission Date: 20210717
  Serious: Yes (Hospitalization)
  Sender: FDA-Public Use
  Company Number: IN-AMNEAL PHARMACEUTICALS-2021-AMRX-02461

PATIENT
  Age: 29 Year
  Sex: Female

DRUGS (1)
  1. AMLODIPINE BESYLATE. [Suspect]
     Active Substance: AMLODIPINE BESYLATE
     Indication: PRODUCT USED FOR UNKNOWN INDICATION
     Dosage: 400 MILLIGRAM/ 40 TABLETS
     Route: 048

REACTIONS (4)
  - Shock [Recovering/Resolving]
  - Overdose [Unknown]
  - Metabolic acidosis [Recovering/Resolving]
  - Acute respiratory distress syndrome [Recovering/Resolving]
